FAERS Safety Report 7519272-X (Version None)
Quarter: 2011Q2

REPORT INFORMATION
  Report Type: 
  Country: None (occurrence: None)
  Receive Date: 20110602
  Receipt Date: 20110527
  Transmission Date: 20111010
  Serious: Yes (Life-Threatening, Hospitalization)
  Sender: FDA-Public Use
  Company Number: BE-TEVA-284026ISR

PATIENT
  Sex: Female
  Weight: 55 kg

DRUGS (4)
  1. PACLITAXEL [Suspect]
     Dosage: 110 MG/HOUR
     Route: 042
     Dates: start: 20110325, end: 20110325
  2. RANITIDINE HYDROCHLORIDE [Concomitant]
     Indication: PREMEDICATION
     Dosage: 50 MILLIGRAM;
     Route: 042
     Dates: start: 20110325
  3. METHYLPEDNISOLONE SODIUM SUCCINATE [Concomitant]
     Indication: PREMEDICATION
     Dosage: 40 MILLIGRAM;
     Route: 042
     Dates: start: 20110325
  4. CETIRIZINE HCL [Concomitant]
     Indication: PREMEDICATION
     Dosage: 10 MILLIGRAM;
     Route: 048
     Dates: start: 20110325

REACTIONS (4)
  - LOSS OF CONSCIOUSNESS [None]
  - CARDIAC ARREST [None]
  - RESPIRATORY FAILURE [None]
  - HYPOTENSION [None]
